FAERS Safety Report 7449419-5 (Version None)
Quarter: 2011Q2

REPORT INFORMATION
  Report Type: 
  Country: None (occurrence: None)
  Receive Date: 20110502
  Receipt Date: 20110423
  Transmission Date: 20111010
  Serious: No
  Sender: FDA-Public Use
  Company Number: US-BIOGENIDEC-2011BI015843

PATIENT
  Age: 31 Year
  Sex: Female

DRUGS (2)
  1. TYSABRI [Suspect]
     Indication: MULTIPLE SCLEROSIS
     Route: 042
     Dates: start: 20101027
  2. TYSABRI [Suspect]
     Route: 042
     Dates: start: 20080201, end: 20091218

REACTIONS (3)
  - HEADACHE [None]
  - SINUS HEADACHE [None]
  - FATIGUE [None]
